FAERS Safety Report 4982418-1 (Version None)
Quarter: 2006Q2

REPORT INFORMATION
  Report Type: 
  Country: None (occurrence: None)
  Receive Date: 20060419
  Receipt Date: 20060410
  Transmission Date: 20061013
  Serious: Yes (Hospitalization)
  Sender: FDA-Public Use
  Company Number: 163-20785-06010094

PATIENT
  Age: 73 Year
  Sex: Male

DRUGS (8)
  1. THALOMID [Suspect]
     Indication: MULTIPLE MYELOMA
     Dosage: 100 - 200 MG, QD, ORAL
     Route: 048
     Dates: start: 20040323, end: 20051220
  2. ASPIRIN [Concomitant]
  3. PLAVIX [Concomitant]
  4. TOPROL-XL [Concomitant]
  5. ALTACE [Concomitant]
  6. ZOLOFT [Concomitant]
  7. ZETIA [Concomitant]
  8. TRICOR [Concomitant]

REACTIONS (2)
  - CORONARY ARTERY SURGERY [None]
  - CORONARY REVASCULARISATION [None]
